FAERS Safety Report 19962675 (Version 2)
Quarter: 2022Q1

REPORT INFORMATION
  Report Type: Spontaneous
  Country: GB (occurrence: GB)
  Receive Date: 20211018
  Receipt Date: 20220117
  Transmission Date: 20220423
  Serious: Yes (Other)
  Sender: FDA-Public Use
  Company Number: GB-BLUEPRINT MEDICINES CORPORATION-SP-GB-2021-001858

PATIENT
  Age: 74 Year
  Sex: Female

DRUGS (2)
  1. AVAPRITINIB [Suspect]
     Active Substance: AVAPRITINIB
     Indication: Systemic mastocytosis
     Route: 048
  2. AVAPRITINIB [Suspect]
     Active Substance: AVAPRITINIB
     Route: 048

REACTIONS (1)
  - Cytopenia [Recovered/Resolved]
